FAERS Safety Report 9606081 (Version 1)
Quarter: 2013Q4

REPORT INFORMATION
  Report Type: Spontaneous
  Country: US (occurrence: US)
  Receive Date: 20131008
  Receipt Date: 20131008
  Transmission Date: 20140711
  Serious: No
  Sender: FDA-Public Use
  Company Number: US-AMGEN-USASP2013042157

PATIENT
  Age: 62 Year
  Sex: Female

DRUGS (7)
  1. PROLIA [Suspect]
     Indication: OSTEOPOROSIS POSTMENOPAUSAL
     Dosage: 60 MG, Q6MO
     Dates: start: 20111205
  2. PROLIA [Suspect]
     Dosage: 60 MG, Q6MO
     Dates: start: 20121218
  3. PRILOSEC                           /00661201/ [Concomitant]
  4. WELLBUTRIN [Concomitant]
  5. ZOCOR [Concomitant]
  6. CLORAZEPATE [Concomitant]
  7. BABY ASPIRIN [Concomitant]

REACTIONS (1)
  - Neck pain [Recovered/Resolved]
